FAERS Safety Report 19069405 (Version 1)
Quarter: 2021Q1

REPORT INFORMATION
  Report Type: Spontaneous
  Country: US (occurrence: US)
  Receive Date: 20210329
  Receipt Date: 20210329
  Transmission Date: 20210420
  Serious: Yes (Death, Hospitalization)
  Sender: FDA-Public Use
  Company Number: US-PFIZER INC-2021299105

PATIENT
  Age: 70 Year
  Sex: Male

DRUGS (13)
  1. DOPAMINE HCL [Suspect]
     Active Substance: DOPAMINE HYDROCHLORIDE
     Indication: HYPERTENSION
     Dosage: UNK
     Route: 041
  2. CARVEDILOL. [Concomitant]
     Active Substance: CARVEDILOL
     Dosage: 12.5 MG, 2X/DAY (12.5 MILLIGRAMS TWICE DAILY)
     Route: 048
  3. DOPAMINE HCL [Suspect]
     Active Substance: DOPAMINE HYDROCHLORIDE
     Dosage: 20 UG/KG (20 MCG/KG/MIN)
     Route: 041
  4. LEVOTHYROXINE. [Concomitant]
     Active Substance: LEVOTHYROXINE
     Dosage: 25 MG, 1X/DAY (25 MICROGRAMS ONCE DAILY)
     Route: 048
  5. EPINEPHRINE. [Suspect]
     Active Substance: EPINEPHRINE
     Indication: HYPERTENSION
     Dosage: UNK  (100 MCG/MIN)
  6. LEVOTHYROXINE. [Suspect]
     Active Substance: LEVOTHYROXINE
     Indication: MYXOEDEMA COMA
     Dosage: 400 MG
     Route: 042
  7. PHENYLEPHRINE [Suspect]
     Active Substance: PHENYLEPHRINE HYDROCHLORIDE
     Dosage: UNK (200 MCG/MIN)
  8. LIOTHYRONINE [Suspect]
     Active Substance: LIOTHYRONINE
     Dosage: 20 MG
     Route: 042
  9. ATROPINE. [Concomitant]
     Active Substance: ATROPINE
     Dosage: 0.5 MG (1 DOSE OF 0.5 MILLIGRAMS OF INTRAVENOUS ATROPINE )
     Route: 042
  10. HYDROCORTISONE SODIUM SUCCINATE [Suspect]
     Active Substance: HYDROCORTISONE SODIUM SUCCINATE
     Indication: MYXOEDEMA COMA
     Dosage: 100 MG
     Route: 042
  11. NOREPINEPHRINE BITARTRATE. [Suspect]
     Active Substance: NOREPINEPHRINE BITARTRATE
     Indication: HYPERTENSION
     Dosage: 200 UG (200 MCG/MIN)
  12. PEMBROLIZUMAB. [Concomitant]
     Active Substance: PEMBROLIZUMAB
     Dosage: 200 MG (200 MILLIGRAMS EVERY 3 WEEKS)
     Route: 042
  13. AXITINIB [Concomitant]
     Active Substance: AXITINIB
     Dosage: 7 MG, 2X/DAY (7 MILLIGRAMS TWICE DAILY)
     Route: 048

REACTIONS (1)
  - Drug ineffective [Fatal]
